FAERS Safety Report 8162964-2 (Version None)
Quarter: 2012Q1

REPORT INFORMATION
  Report Type: 
  Country: None (occurrence: None)
  Receive Date: 20120224
  Receipt Date: 20120216
  Transmission Date: 20120608
  Serious: Yes (Death, Other)
  Sender: FDA-Public Use
  Company Number: US-BAYER-200934464NA

PATIENT
  Age: 70 Year
  Sex: Male
  Weight: 77 kg

DRUGS (19)
  1. DILTIAZEM [Concomitant]
     Dosage: 240 MG, QD
     Route: 048
     Dates: start: 20020101
  2. ZOCOR [Concomitant]
     Dosage: 80 MG, HS
     Route: 048
     Dates: start: 20020101
  3. PANCURONIUM BROMIDE [Concomitant]
     Dosage: UNK
     Route: 042
     Dates: start: 20041008
  4. MILRINONE [Concomitant]
     Dosage: 1 MG, UNK
     Route: 042
     Dates: start: 20041008
  5. VANCOMYCIN [Concomitant]
     Dosage: 1 G, UNK
     Route: 042
     Dates: start: 20041008
  6. TRASYLOL [Suspect]
     Indication: CORONARY ARTERY BYPASS
     Dosage: UNK
     Route: 042
     Dates: start: 20041008
  7. NIACIN [Concomitant]
     Dosage: 1000 MG, QD
     Route: 048
  8. MIDAZOLAM [Concomitant]
     Dosage: 10 MG, UNK
     Route: 042
     Dates: start: 20041008
  9. LEVOXYL [Concomitant]
     Dosage: 25 MG, QD
     Route: 048
     Dates: start: 20020101
  10. DIOVAN HCT [Concomitant]
     Dosage: 80/12.5 MG AT BEDTIME
     Route: 048
     Dates: start: 20020101
  11. TRASYLOL [Suspect]
     Indication: MITRAL VALVE REPLACEMENT
  12. FUROSEMIDE [Concomitant]
     Dosage: 40 MG, QD
     Route: 048
     Dates: start: 20000101
  13. COUMADIN [Concomitant]
     Dosage: 5 MG, QD
     Route: 048
     Dates: start: 20020101
  14. CARBIDOPA + LEVODOPA [Concomitant]
     Dosage: 25/100 MG 2-4 TIMES DAILY
     Route: 048
     Dates: start: 20020101
  15. LITHIUM CARBONATE [Concomitant]
     Dosage: UNK
     Route: 048
  16. LANOXIN [Concomitant]
     Dosage: 0.25 MG, QD
     Route: 048
     Dates: start: 19970101
  17. CELEBREX [Concomitant]
     Dosage: 200 MG, QD, PRN
     Route: 048
     Dates: start: 19970101
  18. MOTRIN [Concomitant]
     Dosage: 400 MG, QID
     Route: 048
  19. CEFEPIME [Concomitant]
     Dosage: 1 G, UNK
     Route: 042
     Dates: start: 20041008

REACTIONS (13)
  - EMOTIONAL DISTRESS [None]
  - MULTI-ORGAN FAILURE [None]
  - RENAL IMPAIRMENT [None]
  - RENAL INJURY [None]
  - PAIN [None]
  - INJURY [None]
  - DEATH [None]
  - ANXIETY [None]
  - FEAR [None]
  - UNEVALUABLE EVENT [None]
  - STRESS [None]
  - RENAL FAILURE [None]
  - ANHEDONIA [None]
